FAERS Safety Report 9536268 (Version 1)
Quarter: 2013Q2

REPORT INFORMATION
  Report Type: Spontaneous
  Country: US (occurrence: None)
  Receive Date: 20130410
  Receipt Date: 20130410
  Transmission Date: 20140414
  Serious: Yes (Disabling)
  Sender: FDA-Public Use
  Company Number: 13US000584

PATIENT
  Age: 45 Year
  Sex: Male
  Weight: 90.7 kg

DRUGS (3)
  1. IMIQUIMOD 5% 2H1 [Suspect]
     Indication: ANOGENITAL WARTS
     Dosage: SMALL AMOUNT, BID, TOPICAL
     Route: 061
     Dates: start: 20130114, end: 20130116
  2. SYNTHROID (LEVOTHYROXINE SODIUM) [Concomitant]
  3. INSULIN (INSULIN) [Concomitant]

REACTIONS (4)
  - Application site pain [None]
  - Application site swelling [None]
  - Inappropriate schedule of drug administration [None]
  - Drug ineffective [None]
